FAERS Safety Report 19808374 (Version 1)
Quarter: 2021Q3

REPORT INFORMATION
  Report Type: Spontaneous
  Country: US (occurrence: US)
  Receive Date: 20210908
  Receipt Date: 20210908
  Transmission Date: 20211014
  Serious: No
  Sender: FDA-Public Use
  Company Number: US-009507513-2109USA000903

PATIENT
  Sex: Female

DRUGS (1)
  1. STROMECTOL [Suspect]
     Active Substance: IVERMECTIN
     Indication: COVID-19 TREATMENT
     Dosage: 3 MILLIGRAM
     Route: 048

REACTIONS (4)
  - Product supply issue [Unknown]
  - No adverse event [Unknown]
  - Product prescribing error [Unknown]
  - Product distribution issue [Unknown]
